FAERS Safety Report 4386957-6 (Version None)
Quarter: 2004Q2

REPORT INFORMATION
  Report Type: 
  Country: None (occurrence: None)
  Receive Date: 20040625
  Receipt Date: 20040623
  Transmission Date: 20050107
  Serious: Yes (Death)
  Sender: FDA-Public Use
  Company Number: J081-002-001689

PATIENT
  Age: 89 Year
  Sex: Female

DRUGS (5)
  1. ARICEPT [Suspect]
     Indication: DEMENTIA ALZHEIMER'S TYPE
     Dosage: SEE IMAGE
     Route: 048
     Dates: start: 20040327, end: 20040418
  2. ARICEPT [Suspect]
     Indication: DEMENTIA ALZHEIMER'S TYPE
     Dosage: SEE IMAGE
     Route: 048
     Dates: start: 20040419, end: 20040613
  3. WARFARIN (WARFARIN POTASSIUM) [Suspect]
     Dosage: 3 MG, ORAL
     Route: 048
     Dates: end: 20040613
  4. LUPRAC (TORASEMIDE) [Concomitant]
  5. NAUZELIN (DOMPERIDONE) [Concomitant]

REACTIONS (4)
  - DEMENTIA ALZHEIMER'S TYPE [None]
  - DISEASE PROGRESSION [None]
  - DUODENAL ULCER [None]
  - SMALL INTESTINAL HAEMORRHAGE [None]
